FAERS Safety Report 6262475-5 (Version None)
Quarter: 2009Q3

REPORT INFORMATION
  Report Type: 
  Country: None (occurrence: None)
  Receive Date: 20090709
  Receipt Date: 20090625
  Transmission Date: 20100115
  Serious: Yes (Other)
  Sender: FDA-Public Use
  Company Number: DE-MYLANLABS-2009S1011412

PATIENT
  Age: 82 Year
  Sex: Male

DRUGS (5)
  1. SPIRONOLACTON DURA [Suspect]
     Indication: OEDEMA PERIPHERAL
     Dates: start: 20090522, end: 20090531
  2. SPIRONOLACTON DURA [Suspect]
     Dates: start: 20090616, end: 20090620
  3. DICLOFENAC [Concomitant]
     Indication: OSTEOARTHRITIS
  4. INSULIN [Concomitant]
     Indication: DIABETES MELLITUS
  5. ANTIHYPERTENSIVES [Concomitant]
     Indication: HYPERTENSION

REACTIONS (2)
  - ARTHRALGIA [None]
  - MUSCULAR WEAKNESS [None]
